FAERS Safety Report 18627745 (Version 1)
Quarter: 2020Q4

REPORT INFORMATION
  Report Type: Spontaneous
  Country: DK (occurrence: DK)
  Receive Date: 20201217
  Receipt Date: 20201217
  Transmission Date: 20210114
  Serious: Yes (Congenital Anomaly, Other)
  Sender: FDA-Public Use
  Company Number: DK-MYLANLABS-2020M1103199

PATIENT

DRUGS (14)
  1. SIMVASTATIN. [Suspect]
     Active Substance: SIMVASTATIN
     Indication: FOETAL EXPOSURE TIMING UNSPECIFIED
     Dosage: UNK
     Route: 064
  2. SALBUTAMOL [Suspect]
     Active Substance: ALBUTEROL
     Indication: DRUG THERAPY
     Dosage: UNK
     Route: 064
  3. EZETIMIBE. [Suspect]
     Active Substance: EZETIMIBE
     Indication: DRUG THERAPY
     Dosage: UNK
     Route: 064
  4. ACETYLSALICYLIC ACID [Suspect]
     Active Substance: ASPIRIN
     Indication: FOETAL EXPOSURE TIMING UNSPECIFIED
     Dosage: UNK
     Route: 064
  5. HYDROXYCHLOROQUINE [Suspect]
     Active Substance: HYDROXYCHLOROQUINE
     Indication: FOETAL EXPOSURE TIMING UNSPECIFIED
     Dosage: UNK
     Route: 064
  6. PREDNISOLONE. [Suspect]
     Active Substance: PREDNISOLONE
     Indication: DRUG THERAPY
     Dosage: UNK
     Route: 064
  7. RIVAROXABAN [Suspect]
     Active Substance: RIVAROXABAN
     Indication: DRUG THERAPY
     Dosage: UNK
     Route: 064
  8. PANTOPRAZOLE [Suspect]
     Active Substance: PANTOPRAZOLE
     Indication: DRUG THERAPY
     Dosage: UNK
     Route: 064
  9. RAMIPRIL. [Suspect]
     Active Substance: RAMIPRIL
     Indication: DRUG THERAPY
     Dosage: UNK
     Route: 064
  10. TORSEMIDE. [Suspect]
     Active Substance: TORSEMIDE
     Indication: DRUG THERAPY
     Dosage: UNK
     Route: 064
  11. ALISKIREN [Suspect]
     Active Substance: ALISKIREN
     Indication: DRUG THERAPY
     Dosage: UNK
     Route: 064
  12. DALTEPARIN [Suspect]
     Active Substance: DALTEPARIN
     Indication: DRUG THERAPY
     Dosage: UNK
     Route: 064
  13. METAMIZOLE [Suspect]
     Active Substance: METAMIZOLE
     Indication: DRUG THERAPY
     Dosage: UNK
     Route: 064
  14. TACROLIMUS. [Suspect]
     Active Substance: TACROLIMUS
     Indication: DRUG THERAPY
     Dosage: UNK
     Route: 064

REACTIONS (4)
  - Congenital cardiovascular anomaly [Unknown]
  - Maternal exposure during pregnancy [Unknown]
  - Heart disease congenital [Unknown]
  - Cardiac septal defect [Unknown]
